FAERS Safety Report 13148882 (Version 1)
Quarter: 2017Q1

REPORT INFORMATION
  Report Type: Spontaneous
  Country: US (occurrence: US)
  Receive Date: 20170124
  Receipt Date: 20170124
  Transmission Date: 20170428
  Serious: Yes (Hospitalization)
  Sender: FDA-Public Use
  Company Number: None

PATIENT
  Age: 55 Year
  Sex: Female

DRUGS (3)
  1. ZEBETA [Concomitant]
     Active Substance: BISOPROLOL FUMARATE
  2. MUCINEX [Suspect]
     Active Substance: GUAIFENESIN
     Indication: RESPIRATORY TRACT CONGESTION
     Dosage: ?          QUANTITY:?19;?
     Route: 048
     Dates: start: 20161009, end: 20161009
  3. POT CITRATE ER TABS 100^S 10 MEQ [Concomitant]
     Active Substance: POTASSIUM CITRATE

REACTIONS (2)
  - Heart rate increased [None]
  - Dyspnoea [None]

NARRATIVE: CASE EVENT DATE: 20161009
